FAERS Safety Report 7935140-3 (Version None)
Quarter: 2011Q4

REPORT INFORMATION
  Report Type: 
  Country: None (occurrence: None)
  Receive Date: 20111117
  Receipt Date: 20111111
  Transmission Date: 20120403
  Serious: Yes (Hospitalization)
  Sender: FDA-Public Use
  Company Number: DSA_48161_2011

PATIENT
  Sex: Male
  Weight: 54.4316 kg

DRUGS (1)
  1. XENAZINE [Suspect]
     Indication: HUNTINGTON'S DISEASE
     Dosage: (12.5 MG TID ORAL)
     Route: 048
     Dates: start: 20100917, end: 20110911

REACTIONS (1)
  - MENTAL DISORDER [None]
